FAERS Safety Report 15388675 (Version 1)
Quarter: 2018Q3

REPORT INFORMATION
  Report Type: Report from Study
  Country: US (occurrence: US)
  Receive Date: 20180916
  Receipt Date: 20180916
  Transmission Date: 20181010
  Serious: No
  Sender: FDA-Public Use
  Company Number: PHEH2018US037585

PATIENT
  Sex: Male

DRUGS (2)
  1. ENTRESTO [Suspect]
     Active Substance: SACUBITRIL\VALSARTAN
     Indication: CARDIAC FAILURE
     Dosage: 1 DF, BID
     Route: 048
     Dates: start: 2017
  2. ENTRESTO [Suspect]
     Active Substance: SACUBITRIL\VALSARTAN
     Dosage: 1 DF, QD, ABOUT 2 WEEKS AGO
     Route: 048

REACTIONS (6)
  - Asthenia [Unknown]
  - Gait disturbance [Recovering/Resolving]
  - Hypotension [Unknown]
  - Inappropriate schedule of drug administration [Unknown]
  - Dyspnoea [Recovering/Resolving]
  - Drug prescribing error [Unknown]
